FAERS Safety Report 7917570-9 (Version None)
Quarter: 2011Q4

REPORT INFORMATION
  Report Type: 
  Country: None (occurrence: None)
  Receive Date: 20111116
  Receipt Date: 20111108
  Transmission Date: 20120403
  Serious: Yes (Other)
  Sender: FDA-Public Use
  Company Number: US-NOVOPROD-338983

PATIENT

DRUGS (1)
  1. VICTOZA [Suspect]
     Indication: TYPE 1 DIABETES MELLITUS
     Dosage: 1.8 MG, QD
     Route: 058
     Dates: start: 20110401, end: 20111102

REACTIONS (6)
  - NAUSEA [None]
  - VOMITING [None]
  - GLYCOSYLATED HAEMOGLOBIN INCREASED [None]
  - DEHYDRATION [None]
  - PANCREATITIS ACUTE [None]
  - BLOOD GLUCOSE ABNORMAL [None]
